FAERS Safety Report 8280040-5 (Version None)
Quarter: 2012Q2

REPORT INFORMATION
  Report Type: 
  Country: None (occurrence: None)
  Receive Date: 20120412
  Receipt Date: 20111026
  Transmission Date: 20120825
  Serious: No
  Sender: FDA-Public Use
  Company Number: US-ASTRAZENECA-2011SE64778

PATIENT
  Age: 60 Year
  Sex: Female
  Weight: 77.1 kg

DRUGS (8)
  1. NEXIUM [Suspect]
     Indication: GASTROOESOPHAGEAL REFLUX DISEASE
     Route: 048
  2. SYNTHROID [Concomitant]
     Dosage: 25 MCG, EVERY OTHER DAY
  3. LORAZEPAM [Concomitant]
  4. PREMADONE [Concomitant]
     Indication: TREMOR
  5. CELEBREX [Concomitant]
  6. CLONIPINE [Concomitant]
     Indication: ANXIETY
     Dosage: 1 MG, TWO TIMES A DAY
  7. SEROQUEL XR [Suspect]
     Indication: DEPRESSION
     Dosage: 300 MG, TWO TIMES A DAY
     Route: 048
     Dates: start: 20070101
  8. DEZERAL [Concomitant]

REACTIONS (5)
  - TREMOR [None]
  - ANXIETY [None]
  - ASTHMA [None]
  - THYROID DISORDER [None]
  - NERVOUSNESS [None]
